FAERS Safety Report 20566964 (Version 1)
Quarter: 2022Q1

REPORT INFORMATION
  Report Type: Spontaneous
  Country: JP (occurrence: JP)
  Receive Date: 20220308
  Receipt Date: 20220308
  Transmission Date: 20220424
  Serious: Yes (Hospitalization)
  Sender: FDA-Public Use
  Company Number: JPN-CUMBERLAND-2022-US-000001

PATIENT
  Age: 53 Year
  Sex: Female

DRUGS (3)
  1. REDITREX [Suspect]
     Active Substance: METHOTREXATE
     Route: 065
  2. BARICITINIB [Suspect]
     Active Substance: BARICITINIB
     Route: 065
  3. TACROLIMUS [Suspect]
     Active Substance: TACROLIMUS
     Route: 065

REACTIONS (5)
  - Epstein-Barr virus infection [Recovered/Resolved]
  - Encephalitis [Recovered/Resolved]
  - Altered state of consciousness [Recovered/Resolved]
  - Pyrexia [Recovered/Resolved]
  - Gait disturbance [Recovered/Resolved]
